FAERS Safety Report 5332987-7 (Version None)
Quarter: 2007Q1

REPORT INFORMATION
  Report Type: 
  Country: None (occurrence: None)
  Receive Date: 20070306
  Receipt Date: 20061016
  Transmission Date: 20070707
  Serious: Yes (Hospitalization)
  Sender: FDA-Public Use
  Company Number: A03200606317

PATIENT
  Age: 79 Year
  Sex: Female
  Weight: 95.24 kg

DRUGS (9)
  1. PLAVIX [Suspect]
     Indication: MYOCARDIAL INFARCTION
     Dosage: 75 MG QD - ORAL
     Route: 048
  2. METOPROLOL SUCCINATE [Concomitant]
  3. EZETIMIBE [Concomitant]
  4. ACETYLSALICYLIC ACID SRT [Concomitant]
  5. DIAZEPAM [Concomitant]
  6. GLYCERYL TRINITRATE [Concomitant]
  7. GLIPIZIDE [Concomitant]
  8. NAPROXEN SODIUM [Concomitant]
  9. GLUCOSAMINE [Concomitant]

REACTIONS (2)
  - ARTHRALGIA [None]
  - URTICARIA GENERALISED [None]
